FAERS Safety Report 5028282-6 (Version None)
Quarter: 2006Q2

REPORT INFORMATION
  Report Type: 
  Country: None (occurrence: None)
  Receive Date: 20060613
  Receipt Date: 20060602
  Transmission Date: 20061013
  Serious: Yes (Other)
  Sender: FDA-Public Use
  Company Number: 2006071558

PATIENT
  Age: 58 Year
  Sex: Female

DRUGS (2)
  1. NORVASC [Suspect]
     Indication: HYPERTENSION
     Dosage: 5 MG (5 MG, OD), ORAL
     Route: 048
  2. METOPROLOL SUCCINATE [Concomitant]

REACTIONS (9)
  - BLOOD CREATININE INCREASED [None]
  - BLOOD PRESSURE INADEQUATELY CONTROLLED [None]
  - BLOOD PRESSURE INCREASED [None]
  - CONDITION AGGRAVATED [None]
  - NEPHROPATHY [None]
  - PHARMACEUTICAL PRODUCT COUNTERFEIT [None]
  - REFUSAL OF TREATMENT BY PATIENT [None]
  - VENTRICULAR HYPERTROPHY [None]
  - VICTIM OF CRIME [None]
